FAERS Safety Report 5859473-X (Version None)
Quarter: 2008Q3

REPORT INFORMATION
  Report Type: 
  Country: None (occurrence: None)
  Receive Date: 20080827
  Receipt Date: 20080821
  Transmission Date: 20090109
  Serious: Yes (Death)
  Sender: FDA-Public Use
  Company Number: A0694272A

PATIENT
  Age: 59 Year
  Sex: Male
  Weight: 150 kg

DRUGS (2)
  1. AVANDIA [Suspect]
     Dosage: 4MG PER DAY
     Route: 048
     Dates: start: 20020305, end: 20061016
  2. GLUCOTROL XL [Concomitant]
     Dates: start: 20020305, end: 20061016

REACTIONS (6)
  - CARDIAC DISORDER [None]
  - CORONARY ARTERY DISEASE [None]
  - EMOTIONAL DISORDER [None]
  - INJURY [None]
  - MYOCARDIAL INFARCTION [None]
  - PAIN [None]
